FAERS Safety Report 18780179 (Version 1)
Quarter: 2021Q1

REPORT INFORMATION
  Report Type: Other
  Country: CN (occurrence: CN)
  Receive Date: 20210125
  Receipt Date: 20210125
  Transmission Date: 20210419
  Serious: Yes (Hospitalization, Other)
  Sender: FDA-Public Use
  Company Number: CN-VISTA PHARMACEUTICALS INC.-2105762

PATIENT
  Age: 64 Year
  Sex: Male
  Weight: 65 kg

DRUGS (2)
  1. SULFAMETHOXAZOLE AND TRIMETHOPRIM [Suspect]
     Active Substance: SULFAMETHOXAZOLE\TRIMETHOPRIM
     Indication: PNEUMOCYSTIS JIROVECII PNEUMONIA
     Route: 048
  2. TORSEMIDE. [Concomitant]
     Active Substance: TORSEMIDE
     Route: 048

REACTIONS (2)
  - Delirium [Recovered/Resolved]
  - Hypoglycaemia [Recovered/Resolved]
